FAERS Safety Report 9384077 (Version 2)
Quarter: 2013Q3

REPORT INFORMATION
  Report Type: Spontaneous
  Country: US (occurrence: US)
  Receive Date: 20130705
  Receipt Date: 20130715
  Transmission Date: 20140515
  Serious: Yes (Other)
  Sender: FDA-Public Use
  Company Number: US-JNJFOC-20130618654

PATIENT
  Age: 56 Year
  Sex: Male
  Weight: 98.88 kg

DRUGS (9)
  1. TRAMADOL HYDROCHLORIDE [Suspect]
     Indication: HEADACHE
     Dosage: 50 MG FOUR TIMES A DAY
     Route: 048
     Dates: start: 201306
  2. LIPITOR [Concomitant]
     Indication: DIABETES MELLITUS
     Route: 065
     Dates: start: 201306
  3. LISINOPRIL [Concomitant]
     Indication: BLOOD PRESSURE
     Route: 065
     Dates: start: 201306
  4. LISINOPRIL [Concomitant]
     Indication: DIABETES MELLITUS
     Route: 065
     Dates: start: 201306
  5. HYDRALAZINE [Concomitant]
     Indication: BLOOD PRESSURE
     Route: 065
     Dates: start: 201306
  6. FERROUS SULFATE [Concomitant]
     Indication: BLOOD IRON
     Route: 065
     Dates: start: 201306
  7. CARVEDILOL [Concomitant]
     Indication: CARDIAC DISORDER
     Route: 065
     Dates: start: 201306
  8. PREDNISONE [Concomitant]
     Indication: CARDIAC DISORDER
     Route: 065
     Dates: start: 201306
  9. CLOPIDOGREL [Concomitant]
     Indication: ANTICOAGULANT THERAPY
     Dosage: DAILY, ORAL
     Route: 065
     Dates: start: 201306

REACTIONS (2)
  - Diabetes mellitus [Not Recovered/Not Resolved]
  - Wound [Not Recovered/Not Resolved]
